FAERS Safety Report 23055317 (Version 1)
Quarter: 2023Q4

REPORT INFORMATION
  Report Type: Spontaneous
  Country: US (occurrence: None)
  Receive Date: 20231010
  Receipt Date: 20231010
  Transmission Date: 20240110
  Serious: Yes (Death)
  Sender: FDA-Public Use
  Company Number: None

PATIENT
  Age: 57 Year
  Sex: Male

DRUGS (24)
  1. PROGRAF [Suspect]
     Active Substance: TACROLIMUS
     Indication: Heart transplant
     Dates: start: 202308, end: 202310
  2. CARVEDILOL [Concomitant]
     Active Substance: CARVEDILOL
  3. ITRACONAZOLE [Concomitant]
     Active Substance: ITRACONAZOLE
  4. SODIUM BICARBONATE [Concomitant]
     Active Substance: SODIUM BICARBONATE
  5. MIRTAZAPINE [Concomitant]
     Active Substance: MIRTAZAPINE
  6. ASPIRIN [Concomitant]
     Active Substance: ASPIRIN
  7. PRAVASTATIN [Concomitant]
     Active Substance: PRAVASTATIN
  8. PANTOPRAZOLE [Suspect]
     Active Substance: PANTOPRAZOLE
  9. GLIPIZIDE [Concomitant]
     Active Substance: GLIPIZIDE
  10. ENTRESTO [Concomitant]
     Active Substance: SACUBITRIL\VALSARTAN
  11. CLONIDINE [Concomitant]
     Active Substance: CLONIDINE
  12. SULFAMETHOXAZOLE\TRIMETHOPRIM [Concomitant]
     Active Substance: SULFAMETHOXAZOLE\TRIMETHOPRIM
  13. CIPROFLOXACIN [Concomitant]
     Active Substance: CIPROFLOXACIN
  14. MYCOPHENOLATE [Concomitant]
  15. TACROLIMUS [Concomitant]
     Active Substance: TACROLIMUS
  16. VALGANCICLOVIR [Concomitant]
     Active Substance: VALGANCICLOVIR
  17. CEPHALEXIN [Concomitant]
     Active Substance: CEPHALEXIN
  18. SENNA PLUS [Concomitant]
     Active Substance: DOCUSATE SODIUM\SENNOSIDES\SENNOSIDES A AND B
  19. DAILY-VITE [Concomitant]
  20. PREDNISONE [Concomitant]
     Active Substance: PREDNISONE
  21. MIDODRINE [Concomitant]
     Active Substance: MIDODRINE
  22. METOCLOPRAMIDE [Concomitant]
     Active Substance: METOCLOPRAMIDE
  23. AMLODIPINE [Concomitant]
     Active Substance: AMLODIPINE BESYLATE
  24. HYDRALAZINE [Concomitant]
     Active Substance: HYDRALAZINE HYDROCHLORIDE

REACTIONS (1)
  - Illness [None]

NARRATIVE: CASE EVENT DATE: 20230710
